FAERS Safety Report 4495920-6 (Version None)
Quarter: 2004Q3

REPORT INFORMATION
  Report Type: 
  Country: None (occurrence: None)
  Receive Date: 20040927
  Receipt Date: 20040521
  Transmission Date: 20050211
  Serious: No
  Sender: FDA-Public Use
  Company Number: USA040568318

PATIENT
  Sex: Female

DRUGS (3)
  1. STRATTERA [Suspect]
  2. PAXIL [Concomitant]
  3. WELLBUTRIN [Concomitant]

REACTIONS (4)
  - ANOREXIA [None]
  - DRY MOUTH [None]
  - HEADACHE [None]
  - IRRITABILITY [None]
